FAERS Safety Report 7939766-2 (Version None)
Quarter: 2011Q4

REPORT INFORMATION
  Report Type: 
  Country: None (occurrence: None)
  Receive Date: 20111125
  Receipt Date: 20111121
  Transmission Date: 20120403
  Serious: Yes (Death)
  Sender: FDA-Public Use
  Company Number: PHHY2011DE75116

PATIENT
  Sex: Male

DRUGS (1)
  1. CARBAMAZEPINE [Suspect]
     Indication: EPILEPSY
     Dosage: UNK UKN, UNK

REACTIONS (4)
  - AZOTAEMIA [None]
  - RENAL FAILURE [None]
  - CARDIAC FAILURE [None]
  - PANCREATIC CARCINOMA [None]
